FAERS Safety Report 22175518 (Version 1)
Quarter: 2023Q2

REPORT INFORMATION
  Report Type: Spontaneous
  Country: GB (occurrence: GB)
  Receive Date: 20230405
  Receipt Date: 20230405
  Transmission Date: 20230721
  Serious: Yes (Other)
  Sender: FDA-Public Use
  Company Number: GB-MHRA-MED-202303221611585260-ZSKLM

PATIENT

DRUGS (1)
  1. DONEPEZIL [Suspect]
     Active Substance: DONEPEZIL
     Indication: Cognitive disorder
     Dosage: 10 MILLIGRAM, DAILY
     Route: 065
     Dates: start: 20230220, end: 20230308

REACTIONS (2)
  - Gait disturbance [Recovering/Resolving]
  - Dysphemia [Recovering/Resolving]

NARRATIVE: CASE EVENT DATE: 20230307
